FAERS Safety Report 5625784-6 (Version None)
Quarter: 2008Q1

REPORT INFORMATION
  Report Type: 
  Country: None (occurrence: None)
  Receive Date: 20080211
  Receipt Date: 20080131
  Transmission Date: 20080703
  Serious: Yes (Life-Threatening)
  Sender: FDA-Public Use
  Company Number: 107#08#2008-00608

PATIENT
  Age: 95 Year
  Sex: Female

DRUGS (3)
  1. AMIODARONE HCL [Suspect]
     Indication: VENTRICULAR TACHYCARDIA
     Dosage: 200 MG DAILY
  2. THYROXINE (THYROXINE) [Concomitant]
  3. INDAPAMIDE+AMLODIPINE (INDAPAMIDE+AMLODIPINE) [Concomitant]

REACTIONS (6)
  - BLOOD MAGNESIUM DECREASED [None]
  - DIZZINESS [None]
  - HYPOKALAEMIA [None]
  - SYNCOPE [None]
  - TACHYCARDIA [None]
  - TORSADE DE POINTES [None]
